FAERS Safety Report 14127388 (Version 1)
Quarter: 2017Q4

REPORT INFORMATION
  Report Type: Spontaneous
  Country: US (occurrence: US)
  Receive Date: 20171026
  Receipt Date: 20171026
  Transmission Date: 20180321
  Serious: No
  Sender: FDA-Public Use
  Company Number: US-TEVA-741775ACC

PATIENT
  Age: 79 Year
  Sex: Female
  Weight: 53 kg

DRUGS (3)
  1. NEUPRO [Concomitant]
     Active Substance: ROTIGOTINE
  2. AZILECT [Concomitant]
     Active Substance: RASAGILINE MESYLATE
  3. CARBIDOPA AND LEVODOPA [Suspect]
     Active Substance: CARBIDOPA\LEVODOPA
     Dosage: CARBIDOPA/LEVODOPA 25/100MG
     Dates: start: 2016

REACTIONS (5)
  - Poor quality drug administered [Unknown]
  - Product solubility abnormal [Unknown]
  - Weight decreased [Unknown]
  - Drug ineffective [Unknown]
  - General physical health deterioration [Unknown]
